FAERS Safety Report 8967660 (Version 1)
Quarter: 2012Q4

REPORT INFORMATION
  Report Type: Spontaneous
  Country: US (occurrence: None)
  Receive Date: 20121206
  Receipt Date: 20121206
  Transmission Date: 20130627
  Serious: Yes (Other)
  Sender: FDA-Public Use
  Company Number: 001427516A

PATIENT
  Age: 58 Year
  Sex: Female

DRUGS (4)
  1. PROACTIV RENEWING CLEANSER [Suspect]
     Indication: ACNE
     Dates: start: 20120821, end: 20120929
  2. PROACTIV REPAIRING TREATMENT [Suspect]
     Indication: ACNE
     Dates: start: 20120821, end: 20120929
  3. PROACTIV DEEP CLEANSING WASH [Suspect]
     Indication: ACNE
     Dates: start: 20120821, end: 20120929
  4. PROACTIV REFINING MASK [Suspect]
     Indication: ACNE
     Dates: start: 20120821, end: 20120929

REACTIONS (4)
  - Acne [None]
  - Condition aggravated [None]
  - Swelling [None]
  - Pruritus [None]
